FAERS Safety Report 4913870-5 (Version None)
Quarter: 2006Q1

REPORT INFORMATION
  Report Type: 
  Country: None (occurrence: None)
  Receive Date: 20060216
  Receipt Date: 20050218
  Transmission Date: 20060701
  Serious: Yes (Hospitalization)
  Sender: FDA-Public Use
  Company Number: US-MERCK-0502USA02889

PATIENT
  Age: 80 Year
  Sex: Female
  Weight: 74 kg

DRUGS (21)
  1. VIOXX [Suspect]
     Indication: ARTHRITIS
     Route: 048
     Dates: start: 20011023, end: 20040817
  2. DILTIAZEM MALATE [Concomitant]
     Route: 065
  3. DIOVAN [Concomitant]
     Route: 065
  4. HYDROCHLOROTHIAZIDE [Concomitant]
     Route: 065
  5. PAXIL [Concomitant]
     Route: 065
  6. PROTONIX [Concomitant]
     Route: 065
  7. ZYRTEC [Concomitant]
     Route: 065
  8. GLUCOSAMINE [Concomitant]
     Route: 065
  9. AUGMENTIN '125' [Concomitant]
     Route: 065
  10. CLARITIN [Concomitant]
     Route: 065
  11. DILTIAZEM HYDROCHLORIDE [Concomitant]
     Route: 065
  12. ACETAMINOPHEN AND HYDROCODONE BITARTRATE [Concomitant]
     Route: 065
  13. NORVASC [Concomitant]
     Route: 065
  14. PREMARIN [Concomitant]
     Route: 065
  15. PREVACID [Concomitant]
     Route: 065
  16. PROCTOSOL-HC CREAM [Concomitant]
     Route: 065
  17. TEMAZEPAM [Concomitant]
     Route: 065
  18. DILTIAZEM [Concomitant]
     Route: 065
  19. HYDROCHLOROTHIAZIDE [Concomitant]
     Route: 065
  20. PAROXETINE HYDROCHLORIDE [Concomitant]
     Route: 065
  21. TEMAZEPAM [Concomitant]
     Route: 065

REACTIONS (10)
  - ARTHROPATHY [None]
  - ATRIOVENTRICULAR BLOCK SECOND DEGREE [None]
  - BALANCE DISORDER [None]
  - BRADYCARDIA [None]
  - CARDIAC DISORDER [None]
  - CATARACT [None]
  - DIZZINESS [None]
  - FATIGUE [None]
  - LACUNAR INFARCTION [None]
  - VASCULAR INJURY [None]
